FAERS Safety Report 5630936-5 (Version None)
Quarter: 2008Q1

REPORT INFORMATION
  Report Type: 
  Country: None (occurrence: None)
  Receive Date: 20080214
  Receipt Date: 20080128
  Transmission Date: 20080703
  Serious: Yes (Other)
  Sender: FDA-Public Use
  Company Number: 2008BI002287

PATIENT
  Sex: Female

DRUGS (1)
  1. AVONEX [Suspect]
     Dosage: IM
     Route: 030
     Dates: start: 20051001

REACTIONS (2)
  - DIABETIC RETINOPATHY [None]
  - EYE HAEMORRHAGE [None]
